FAERS Safety Report 23776544 (Version 1)
Quarter: 2024Q2

REPORT INFORMATION
  Report Type: Spontaneous
  Country: US (occurrence: US)
  Receive Date: 20240424
  Receipt Date: 20240424
  Transmission Date: 20240715
  Serious: No
  Sender: FDA-Public Use
  Company Number: US-SA-SAC20240417000401

PATIENT
  Age: 61 Year
  Sex: Female

DRUGS (6)
  1. DUPIXENT [Suspect]
     Active Substance: DUPILUMAB
     Indication: Injury
     Dosage: 300 MG, QOW
     Route: 058
  2. TRELEGY ELLIPTA [Concomitant]
     Active Substance: FLUTICASONE FUROATE\UMECLIDINIUM BROMIDE\VILANTEROL TRIFENATATE
  3. AMBIEN [Concomitant]
     Active Substance: ZOLPIDEM TARTRATE
  4. PREDNISONE [Concomitant]
     Active Substance: PREDNISONE
  5. PROZAC [Concomitant]
     Active Substance: FLUOXETINE HYDROCHLORIDE
  6. TOPIRAMATE [Concomitant]
     Active Substance: TOPIRAMATE

REACTIONS (5)
  - Bronchitis [Unknown]
  - Oropharyngeal pain [Unknown]
  - Insomnia [Unknown]
  - Depressed mood [Unknown]
  - Product use in unapproved indication [Unknown]
